FAERS Safety Report 5677062-7 (Version None)
Quarter: 2008Q1

REPORT INFORMATION
  Report Type: 
  Country: None (occurrence: None)
  Receive Date: 20080318
  Receipt Date: 20080307
  Transmission Date: 20080703
  Serious: Yes (Other)
  Sender: FDA-Public Use
  Company Number: OPER20080041

PATIENT
  Age: 23 Year
  Sex: Male
  Weight: 113.3993 kg

DRUGS (6)
  1. OPANA ER [Suspect]
     Indication: HEADACHE
     Dosage: 40 MG, 1 TAB TID, PER ORAL
     Route: 048
     Dates: start: 20080201
  2. OPANA [Suspect]
     Indication: HEADACHE
     Dosage: 10 MG, 1 TAB TID, PER ORAL
     Route: 048
     Dates: start: 20071201
  3. OPANA ER [Suspect]
     Indication: HEADACHE
     Dosage: 20 M, 1 TAB BID, PER ORAL
     Route: 048
     Dates: start: 20080101, end: 20080201
  4. ASTELIN [Concomitant]
  5. NASONEX [Concomitant]
  6. XYZAL [Concomitant]

REACTIONS (3)
  - DRUG EFFECT DECREASED [None]
  - INCORRECT DOSE ADMINISTERED [None]
  - INTENTIONAL DRUG MISUSE [None]
